FAERS Safety Report 25441499 (Version 2)
Quarter: 2025Q2

REPORT INFORMATION
  Report Type: Spontaneous
  Country: US (occurrence: US)
  Receive Date: 20250616
  Receipt Date: 20250620
  Transmission Date: 20250716
  Serious: No
  Sender: ABBVIE
  Company Number: US-ABBVIE-6320593

PATIENT
  Age: 64 Year
  Sex: Female

DRUGS (1)
  1. ESTRACE [Suspect]
     Active Substance: ESTRADIOL
     Indication: Product used for unknown indication
     Route: 065
     Dates: start: 20250512

REACTIONS (1)
  - Complication of device removal [Unknown]

NARRATIVE: CASE EVENT DATE: 20250101
